FAERS Safety Report 6704711 (Version 2)
Quarter: 2012Q4

REPORT INFORMATION
  Report Type: 
  Country: CN (occurrence: CN)
  Receive Date: 20080721
  Receipt Date: 20120928
  Transmission Date: 20130627
  Serious: Yes (Other)
  Sender: FDA-Public Use
  Company Number: PHBS2008CN05089

PATIENT
  Age: 35 Year
  Sex: Male

DRUGS (3)
  1. TELBIVUDINE [Suspect]
     Indication: HEPATITIS B
     Dosage: 600 mg, QD
  2. INTERFERON [Suspect]
     Dosage: 3000000 U, Q48H
     Route: 030
  3. ADEFOVIR [Concomitant]

REACTIONS (8)
  - Myalgia [Recovered/Resolved]
  - Muscular weakness [Recovering/Resolving]
  - Blood creatine phosphokinase increased [Unknown]
  - Hypoaesthesia [Recovered/Resolved]
  - Tenderness [Unknown]
  - Fatigue [Recovered/Resolved]
  - Neuralgia [Recovered/Resolved]
  - Arrhythmia [Unknown]
